FAERS Safety Report 9632101 (Version 2)
Quarter: 2014Q2

REPORT INFORMATION
  Report Type: Spontaneous
  Country: FR (occurrence: FR)
  Receive Date: 20131018
  Receipt Date: 20140423
  Transmission Date: 20141212
  Serious: Yes (Other)
  Sender: FDA-Public Use
  Company Number: FR-PFIZER INC-2013298249

PATIENT
  Age: 73 Year
  Sex: Female
  Weight: 38 kg

DRUGS (7)
  1. RAMIPRIL [Suspect]
     Indication: ACUTE CORONARY SYNDROME
     Dosage: 5 MG, 1X/DAY
     Route: 048
     Dates: start: 201304
  2. TAHOR [Suspect]
     Indication: ACUTE CORONARY SYNDROME
     Dosage: 80 MG, DAILY
     Route: 065
     Dates: start: 201304, end: 201310
  3. TAHOR [Suspect]
     Dosage: UNK
     Route: 065
     Dates: start: 20131017
  4. BRILIQUE [Suspect]
     Indication: ACUTE CORONARY SYNDROME
     Dosage: 90 MG, 2X/DAY
     Route: 048
     Dates: start: 201304
  5. KARDEGIC [Concomitant]
     Dosage: UNK
     Route: 065
     Dates: start: 201304
  6. MOPRAL [Concomitant]
     Dosage: UNK
     Route: 065
     Dates: start: 201304
  7. CARDENSIEL [Concomitant]
     Dosage: UNK
     Dates: start: 201304

REACTIONS (7)
  - Arterial disorder [Unknown]
  - Peripheral embolism [Unknown]
  - Blood pressure systolic increased [Unknown]
  - Diarrhoea [Recovered/Resolved]
  - Weight decreased [Recovered/Resolved]
  - Blood creatinine increased [Recovered/Resolved]
  - Heart rate decreased [Unknown]
